FAERS Safety Report 7938287 (Version 2)
Quarter: 2012Q4

REPORT INFORMATION
  Report Type: 
  Country: US (occurrence: US)
  Receive Date: 20110510
  Receipt Date: 20120914
  Transmission Date: 20130627
  Serious: Yes (Hospitalization)
  Sender: FDA-Public Use
  Company Number: US-US-EMD SERONO, INC.-7057710

PATIENT
  Age: 71 None
  Sex: Female

DRUGS (1)
  1. REBIF [Suspect]
     Indication: PROGRESSIVE MULTIPLE SCLEROSIS
     Route: 058
     Dates: start: 20090706

REACTIONS (9)
  - Septic shock [Recovered/Resolved]
  - Cystitis [Unknown]
  - Urinary tract obstruction [Unknown]
  - Back injury [Unknown]
  - Fall [Unknown]
  - Oedema peripheral [Unknown]
  - Musculoskeletal stiffness [Unknown]
  - Multiple sclerosis [Unknown]
  - Myalgia [Unknown]
